FAERS Safety Report 8792759 (Version 2)
Quarter: 2015Q2

REPORT INFORMATION
  Report Type: Report from Study
  Country: US (occurrence: US)
  Receive Date: 20120918
  Receipt Date: 20150617
  Transmission Date: 20150821
  Serious: Yes (Death)
  Sender: FDA-Public Use
  Company Number: US-ROCHE-1102887

PATIENT
  Age: 40 Year
  Sex: Female

DRUGS (11)
  1. REGLAN [Concomitant]
     Active Substance: METOCLOPRAMIDE HYDROCHLORIDE
  2. AVASTIN [Suspect]
     Active Substance: BEVACIZUMAB
     Indication: UTERINE CANCER
     Dosage: 10 MG/KG = 480 MG
     Route: 042
     Dates: start: 20050927
  3. BENADRYL [Concomitant]
     Active Substance: DIPHENHYDRAMINE HYDROCHLORIDE
     Route: 065
  4. TAXOL [Concomitant]
     Active Substance: PACLITAXEL
     Dosage: 10 MG/M2 = 105 MG
     Route: 065
  5. DEXAMETHASONE. [Concomitant]
     Active Substance: DEXAMETHASONE
     Route: 065
  6. ZYPREXA [Concomitant]
     Active Substance: OLANZAPINE
  7. PROTONIX (UNITED STATES) [Concomitant]
  8. AVASTIN [Suspect]
     Active Substance: BEVACIZUMAB
     Indication: METASTASES TO LIVER
  9. TAGAMET [Concomitant]
     Active Substance: CIMETIDINE
     Route: 065
  10. REMERON [Concomitant]
     Active Substance: MIRTAZAPINE
  11. ALOXI [Concomitant]
     Active Substance: PALONOSETRON HYDROCHLORIDE
     Route: 065

REACTIONS (2)
  - Death [Fatal]
  - Off label use [Unknown]

NARRATIVE: CASE EVENT DATE: 20060309
